FAERS Safety Report 14759387 (Version 1)
Quarter: 2018Q2

REPORT INFORMATION
  Report Type: Spontaneous
  Country: IE (occurrence: IE)
  Receive Date: 20180413
  Receipt Date: 20180413
  Transmission Date: 20180711
  Serious: Yes (Hospitalization)
  Sender: FDA-Public Use
  Company Number: IE-SA-2018SA106070

PATIENT
  Age: 70 Year
  Sex: Female

DRUGS (59)
  1. GLUCOSE [Suspect]
     Active Substance: DEXTROSE
     Indication: PARENTERAL NUTRITION
     Dosage: TPN WITH CLINOLEIC?TPN WITHOUT CLINOLEIC? DOSE:1
     Route: 065
  2. GLUCOSE [Suspect]
     Active Substance: DEXTROSE
     Indication: PARENTERAL NUTRITION
     Dosage: TPN WITH CLINOLEIC?TPN WITHOUT CLINOLEIC? DOSE:1
     Route: 065
  3. SODIUM CHLORIDE. [Suspect]
     Active Substance: SODIUM CHLORIDE
     Indication: PARENTERAL NUTRITION
     Route: 065
  4. AMINO ACIDS NOS [Suspect]
     Active Substance: AMINO ACIDS
     Indication: PARENTERAL NUTRITION
     Dosage: TPN WITH CLINOLEIC?TPN WITHOUT CLINOLEIC?DOSE: 1
     Route: 065
  5. CERNEVIT [Suspect]
     Active Substance: VITAMINS
     Indication: PARENTERAL NUTRITION
     Dosage: TPN WITH CLINOLEIC?TPN WITHOUT CLINOLEIC?DOSE:1
     Route: 065
  6. CALCIUM CHLORIDE. [Suspect]
     Active Substance: CALCIUM CHLORIDE
     Indication: PARENTERAL NUTRITION
     Route: 065
  7. COPPER SULFATE [Suspect]
     Active Substance: CUPRIC SULFATE ANHYDROUS
     Dosage: TPN WITHOUT CLINOLEIC?TPN WITH CLINOLEIC?DOSE: 1
     Route: 065
  8. MAGNESIUM SULFATE. [Suspect]
     Active Substance: MAGNESIUM SULFATE
     Indication: PARENTERAL NUTRITION
     Dosage: TPN WITH CLINOLEIC, BAXTER UNLICENSED SPECIALS?TPN WITHOUT CLINOLEIC, BAXTER UNLICENSED SPECIALS
     Route: 065
  9. ZINC SULFATE [Suspect]
     Active Substance: ZINC SULFATE\ZINC SULFATE ANHYDROUS
     Indication: PARENTERAL NUTRITION
     Dosage: TPN WITH CLINOLEIC?TPN WITHOUT CLINOLEIC
     Route: 065
  10. SELENIUM SULFIDE. [Suspect]
     Active Substance: SELENIUM SULFIDE
     Indication: PARENTERAL NUTRITION
     Dosage: TPN WITH CLINOLEIC, BAXTER UNLICENSED SPECIALS?TPN WITHOUT CLINOLEIC, BAXTER UNLICENSED SPECIALS
     Route: 065
  11. POTASSIUM CHLORIDE. [Suspect]
     Active Substance: POTASSIUM CHLORIDE
     Indication: PARENTERAL NUTRITION
     Route: 065
  12. WATER FOR INJECTION [Suspect]
     Active Substance: WATER
     Indication: PARENTERAL NUTRITION
     Dosage: TPN WITH CLINOLEIC?TPN WITHOUT CLINOLEIC?DOSE: 1
     Route: 065
  13. FERROUS CHLORIDE [Suspect]
     Active Substance: FERROUS CHLORIDE
     Indication: PARENTERAL NUTRITION
     Dosage: TPN WITHOUT CLINOLEIC?TPN WITH CLINOLEIC
     Route: 065
  14. FERROUS CHLORIDE [Suspect]
     Active Substance: FERROUS CHLORIDE
     Indication: PARENTERAL NUTRITION
     Dosage: TPN WITHOUT CLINOLEIC?TPN WITH CLINOLEIC
     Route: 065
  15. GLUCOSE [Suspect]
     Active Substance: DEXTROSE
     Indication: PARENTERAL NUTRITION
     Dosage: TPN WITH CLINOLEIC?TPN WITHOUT CLINOLEIC? DOSE:1
     Route: 065
  16. POTASSIUM CHLORIDE. [Suspect]
     Active Substance: POTASSIUM CHLORIDE
     Indication: PARENTERAL NUTRITION
     Route: 065
  17. SODIUM GLYCEROPHOSPHATE [Suspect]
     Active Substance: SODIUM GLYCEROPHOSPHATE
     Indication: PARENTERAL NUTRITION
     Route: 065
  18. AMINO ACIDS NOS [Suspect]
     Active Substance: AMINO ACIDS
     Indication: PARENTERAL NUTRITION
     Dosage: TPN WITH CLINOLEIC?TPN WITHOUT CLINOLEIC?DOSE: 1
     Route: 065
  19. CERNEVIT [Suspect]
     Active Substance: VITAMINS
     Indication: PARENTERAL NUTRITION
     Dosage: TPN WITH CLINOLEIC?TPN WITHOUT CLINOLEIC?DOSE:1
     Route: 065
  20. CALCIUM CHLORIDE. [Suspect]
     Active Substance: CALCIUM CHLORIDE
     Indication: PARENTERAL NUTRITION
     Route: 065
  21. COPPER SULFATE [Suspect]
     Active Substance: CUPRIC SULFATE ANHYDROUS
     Dosage: TPN WITHOUT CLINOLEIC?TPN WITH CLINOLEIC?DOSE: 1
     Route: 065
  22. CLINOLEIC [Suspect]
     Active Substance: OLIVE OIL\SOYBEAN OIL
     Indication: PARENTERAL NUTRITION
     Dosage: EMULSION FOR INFUSION
     Route: 065
  23. MAGNESIUM SULFATE. [Suspect]
     Active Substance: MAGNESIUM SULFATE
     Indication: PARENTERAL NUTRITION
     Dosage: TPN WITH CLINOLEIC, BAXTER UNLICENSED SPECIALS?TPN WITHOUT CLINOLEIC, BAXTER UNLICENSED SPECIALS
     Route: 065
  24. MAGNESIUM SULFATE. [Suspect]
     Active Substance: MAGNESIUM SULFATE
     Indication: PARENTERAL NUTRITION
     Dosage: TPN WITH CLINOLEIC, BAXTER UNLICENSED SPECIALS?TPN WITHOUT CLINOLEIC, BAXTER UNLICENSED SPECIALS
     Route: 065
  25. GLUCOSE [Suspect]
     Active Substance: DEXTROSE
     Indication: PARENTERAL NUTRITION
     Dosage: TPN WITH CLINOLEIC?TPN WITHOUT CLINOLEIC? DOSE:1
     Route: 065
  26. POTASSIUM CHLORIDE. [Suspect]
     Active Substance: POTASSIUM CHLORIDE
     Indication: PARENTERAL NUTRITION
     Route: 065
  27. AMINO ACIDS NOS [Suspect]
     Active Substance: AMINO ACIDS
     Indication: PARENTERAL NUTRITION
     Dosage: TPN WITH CLINOLEIC?TPN WITHOUT CLINOLEIC?DOSE: 1
     Route: 065
  28. WATER. [Suspect]
     Active Substance: WATER
     Indication: PARENTERAL NUTRITION
     Route: 065
  29. COPPER SULFATE [Suspect]
     Active Substance: CUPRIC SULFATE ANHYDROUS
     Dosage: TPN WITHOUT CLINOLEIC?TPN WITH CLINOLEIC?DOSE: 1
     Route: 065
  30. SELENIUM SULFIDE. [Suspect]
     Active Substance: SELENIUM SULFIDE
     Indication: PARENTERAL NUTRITION
     Dosage: TPN WITH CLINOLEIC, BAXTER UNLICENSED SPECIALS?TPN WITHOUT CLINOLEIC, BAXTER UNLICENSED SPECIALS
     Route: 065
  31. COPPER SULFATE [Suspect]
     Active Substance: CUPRIC SULFATE ANHYDROUS
     Dosage: TPN WITHOUT CLINOLEIC?TPN WITH CLINOLEIC?DOSE: 1
     Route: 065
  32. SELENIUM SULFIDE. [Suspect]
     Active Substance: SELENIUM SULFIDE
     Indication: PARENTERAL NUTRITION
     Dosage: TPN WITH CLINOLEIC, BAXTER UNLICENSED SPECIALS?TPN WITHOUT CLINOLEIC, BAXTER UNLICENSED SPECIALS
     Route: 065
  33. SODIUM CHLORIDE. [Suspect]
     Active Substance: SODIUM CHLORIDE
     Indication: PARENTERAL NUTRITION
     Route: 065
  34. SODIUM GLYCEROPHOSPHATE [Suspect]
     Active Substance: SODIUM GLYCEROPHOSPHATE
     Indication: PARENTERAL NUTRITION
     Route: 065
  35. CERNEVIT [Suspect]
     Active Substance: VITAMINS
     Indication: PARENTERAL NUTRITION
     Dosage: TPN WITH CLINOLEIC?TPN WITHOUT CLINOLEIC?DOSE:1
     Route: 065
  36. CERNEVIT [Suspect]
     Active Substance: VITAMINS
     Indication: PARENTERAL NUTRITION
     Dosage: TPN WITH CLINOLEIC?TPN WITHOUT CLINOLEIC?DOSE:1
     Route: 065
  37. CALCIUM CHLORIDE. [Suspect]
     Active Substance: CALCIUM CHLORIDE
     Indication: PARENTERAL NUTRITION
     Route: 065
  38. SELENIUM SULFIDE. [Suspect]
     Active Substance: SELENIUM SULFIDE
     Indication: PARENTERAL NUTRITION
     Dosage: TPN WITH CLINOLEIC, BAXTER UNLICENSED SPECIALS?TPN WITHOUT CLINOLEIC, BAXTER UNLICENSED SPECIALS
     Route: 065
  39. SODIUM CHLORIDE. [Suspect]
     Active Substance: SODIUM CHLORIDE
     Indication: PARENTERAL NUTRITION
     Route: 065
  40. SODIUM CHLORIDE. [Suspect]
     Active Substance: SODIUM CHLORIDE
     Indication: PARENTERAL NUTRITION
     Route: 065
  41. SODIUM GLYCEROPHOSPHATE [Suspect]
     Active Substance: SODIUM GLYCEROPHOSPHATE
     Indication: PARENTERAL NUTRITION
     Route: 065
  42. AMINO ACIDS NOS [Suspect]
     Active Substance: AMINO ACIDS
     Indication: PARENTERAL NUTRITION
     Dosage: TPN WITH CLINOLEIC?TPN WITHOUT CLINOLEIC?DOSE: 1
     Route: 065
  43. WATER FOR INJECTION [Suspect]
     Active Substance: WATER
     Indication: PARENTERAL NUTRITION
     Dosage: TPN WITH CLINOLEIC?TPN WITHOUT CLINOLEIC?DOSE: 1
     Route: 065
  44. WATER. [Suspect]
     Active Substance: WATER
     Indication: PARENTERAL NUTRITION
     Route: 065
  45. FERROUS CHLORIDE [Suspect]
     Active Substance: FERROUS CHLORIDE
     Indication: PARENTERAL NUTRITION
     Dosage: TPN WITHOUT CLINOLEIC?TPN WITH CLINOLEIC
     Route: 065
  46. MAGNESIUM SULFATE. [Suspect]
     Active Substance: MAGNESIUM SULFATE
     Indication: PARENTERAL NUTRITION
     Dosage: TPN WITH CLINOLEIC, BAXTER UNLICENSED SPECIALS?TPN WITHOUT CLINOLEIC, BAXTER UNLICENSED SPECIALS
     Route: 065
  47. TPN [Suspect]
     Active Substance: AMINO ACIDS\DEXTROSE\ELECTROLYTES NOS\SOYBEAN OIL
     Indication: PARENTERAL NUTRITION
     Dosage: UNSPECIFIED FORMULATION
     Route: 065
     Dates: start: 2012
  48. ZINC SULFATE [Suspect]
     Active Substance: ZINC SULFATE\ZINC SULFATE ANHYDROUS
     Indication: PARENTERAL NUTRITION
     Dosage: TPN WITH CLINOLEIC?TPN WITHOUT CLINOLEIC
     Route: 065
  49. ZINC SULFATE [Suspect]
     Active Substance: ZINC SULFATE\ZINC SULFATE ANHYDROUS
     Indication: PARENTERAL NUTRITION
     Dosage: TPN WITH CLINOLEIC?TPN WITHOUT CLINOLEIC
     Route: 065
  50. POTASSIUM CHLORIDE. [Suspect]
     Active Substance: POTASSIUM CHLORIDE
     Indication: PARENTERAL NUTRITION
     Route: 065
  51. SODIUM GLYCEROPHOSPHATE [Suspect]
     Active Substance: SODIUM GLYCEROPHOSPHATE
     Indication: PARENTERAL NUTRITION
     Route: 065
  52. WATER FOR INJECTION [Suspect]
     Active Substance: WATER
     Indication: PARENTERAL NUTRITION
     Dosage: TPN WITH CLINOLEIC?TPN WITHOUT CLINOLEIC?DOSE: 1
     Route: 065
  53. WATER FOR INJECTION [Suspect]
     Active Substance: WATER
     Indication: PARENTERAL NUTRITION
     Dosage: TPN WITH CLINOLEIC?TPN WITHOUT CLINOLEIC?DOSE: 1
     Route: 065
  54. CALCIUM CHLORIDE. [Suspect]
     Active Substance: CALCIUM CHLORIDE
     Indication: PARENTERAL NUTRITION
     Route: 065
  55. WATER. [Suspect]
     Active Substance: WATER
     Indication: PARENTERAL NUTRITION
     Route: 065
  56. WATER. [Suspect]
     Active Substance: WATER
     Indication: PARENTERAL NUTRITION
     Route: 065
  57. FERROUS CHLORIDE [Suspect]
     Active Substance: FERROUS CHLORIDE
     Indication: PARENTERAL NUTRITION
     Dosage: TPN WITHOUT CLINOLEIC?TPN WITH CLINOLEIC
     Route: 065
  58. CLINOLEIC [Suspect]
     Active Substance: OLIVE OIL\SOYBEAN OIL
     Indication: PARENTERAL NUTRITION
     Dosage: EMULSION FOR INFUSION
     Route: 065
  59. ZINC SULFATE [Suspect]
     Active Substance: ZINC SULFATE\ZINC SULFATE ANHYDROUS
     Indication: PARENTERAL NUTRITION
     Dosage: TPN WITH CLINOLEIC?TPN WITHOUT CLINOLEIC
     Route: 065

REACTIONS (1)
  - Device related infection [Unknown]

NARRATIVE: CASE EVENT DATE: 20180321
